FAERS Safety Report 8694056 (Version 2)
Quarter: 2012Q4

REPORT INFORMATION
  Report Type: 
  Country: GB (occurrence: GB)
  Receive Date: 20120731
  Receipt Date: 20120904
  Transmission Date: 20130627
  Serious: No
  Sender: FDA-Public Use
  Company Number: PHFR2012GB004195

PATIENT
  Age: 67 Year
  Sex: Male
  Weight: 72 kg

DRUGS (5)
  1. NILOTINIB [Suspect]
     Indication: CHRONIC MYELOID LEUKAEMIA
     Dosage: 200 mg, daily
     Route: 048
     Dates: start: 20111229, end: 20120130
  2. NILOTINIB [Suspect]
     Dosage: 400 mg, daily
     Route: 048
     Dates: start: 20120130, end: 20120416
  3. NILOTINIB [Suspect]
     Dosage: 600 mg, daily
     Route: 048
     Dates: start: 20120416
  4. ASPIRIN [Concomitant]
     Dosage: 75 mg, daily
     Route: 048
     Dates: start: 20110804
  5. ALLOPURINOL [Concomitant]
     Dosage: 300 mg, daily
     Route: 048
     Dates: start: 20110722

REACTIONS (3)
  - Conjunctivitis [Unknown]
  - Erythema [Recovering/Resolving]
  - Dry eye [Unknown]
